FAERS Safety Report 4503097-3 (Version None)
Quarter: 2004Q4

REPORT INFORMATION
  Report Type: 
  Country: None (occurrence: None)
  Receive Date: 20041117
  Receipt Date: 20041001
  Transmission Date: 20050328
  Serious: Yes (Other)
  Sender: FDA-Public Use
  Company Number: JP-ROCHE-382161

PATIENT
  Age: 62 Year
  Sex: Male

DRUGS (2)
  1. PEGASYS [Suspect]
     Route: 058
     Dates: start: 20040524, end: 20040927
  2. IOPAMIDOL [Concomitant]
     Dates: start: 20040618

REACTIONS (1)
  - VITREOUS HAEMORRHAGE [None]
